FAERS Safety Report 4534765-5 (Version None)
Quarter: 2004Q4

REPORT INFORMATION
  Report Type: 
  Country: None (occurrence: None)
  Receive Date: 20041222
  Receipt Date: 20040212
  Transmission Date: 20050328
  Serious: No
  Sender: FDA-Public Use
  Company Number: US-BRISTOL-MYERS SQUIBB COMPANY-12504155

PATIENT
  Age: 72 Year
  Sex: Female
  Weight: 66 kg

DRUGS (3)
  1. PRAVACHOL [Suspect]
     Indication: BLOOD CHOLESTEROL INCREASED
     Dosage: DOSE INCREASED TO 40 MG 8 MONTHS AGO.
     Route: 048
  2. LEVOXINE [Concomitant]
  3. CENTRUM [Concomitant]

REACTIONS (1)
  - RASH [None]
